FAERS Safety Report 21853849 (Version 1)
Quarter: 2023Q1

REPORT INFORMATION
  Report Type: Spontaneous
  Country: US (occurrence: US)
  Receive Date: 20230112
  Receipt Date: 20230112
  Transmission Date: 20230418
  Serious: Yes (Other)
  Sender: FDA-Public Use
  Company Number: US-AZURITY PHARMACEUTICALS, INC.-US-2023ARB000022

PATIENT
  Sex: Female

DRUGS (1)
  1. FIRVANQ [Suspect]
     Active Substance: VANCOMYCIN HYDROCHLORIDE
     Indication: Product used for unknown indication
     Dosage: TWICE (LATE AUGUST OR EARLY SEPTEMBER)
     Dates: start: 2022

REACTIONS (5)
  - Crohn^s disease [Not Recovered/Not Resolved]
  - Product dose omission issue [Unknown]
  - Poor quality product administered [Unknown]
  - Product colour issue [Unknown]
  - Product deposit [Unknown]

NARRATIVE: CASE EVENT DATE: 20220101
